FAERS Safety Report 5910426-2 (Version None)
Quarter: 2008Q4

REPORT INFORMATION
  Report Type: 
  Country: None (occurrence: None)
  Receive Date: 20081007
  Receipt Date: 20080924
  Transmission Date: 20090506
  Serious: Yes (Hospitalization)
  Sender: FDA-Public Use
  Company Number: FR-ELI_LILLY_AND_COMPANY-FR200807003802

PATIENT
  Age: 70 Year
  Sex: Female

DRUGS (8)
  1. FORTEO [Suspect]
     Indication: OSTEOPOROSIS
     Dosage: 20 UG, DAILY (1/D)
     Route: 058
     Dates: start: 20080401, end: 20080701
  2. LEVOTHYROX [Concomitant]
     Dosage: UNK, UNKNOWN
     Route: 065
  3. INSULIN [Concomitant]
     Dosage: UNK, UNKNOWN
     Route: 065
  4. FUROSEMIDE [Concomitant]
     Dosage: UNK, UNKNOWN
     Route: 065
  5. ALDACTONE [Concomitant]
     Dosage: UNK, UNKNOWN
     Route: 065
  6. ISOPTIN [Concomitant]
     Dosage: UNK, UNKNOWN
     Route: 065
  7. PREVISCAN [Concomitant]
     Dosage: UNK, UNKNOWN
     Route: 065
  8. FENOFIBRATE [Concomitant]
     Dosage: UNK, UNKNOWN
     Route: 065

REACTIONS (2)
  - DYSPNOEA [None]
  - THYROID DISORDER [None]
